FAERS Safety Report 21923207 (Version 1)
Quarter: 2023Q1

REPORT INFORMATION
  Report Type: Other
  Country: JP (occurrence: JP)
  Receive Date: 20230129
  Receipt Date: 20230129
  Transmission Date: 20230418
  Serious: Yes (Other)
  Sender: FDA-Public Use
  Company Number: JP-CHUGAI-2022046807

PATIENT
  Age: 86 Year
  Sex: Male

DRUGS (4)
  1. TECENTRIQ [Suspect]
     Active Substance: ATEZOLIZUMAB
     Indication: Hepatocellular carcinoma
     Dosage: UNK
     Route: 041
     Dates: start: 202103
  2. TECENTRIQ [Suspect]
     Active Substance: ATEZOLIZUMAB
     Dosage: UNK
     Route: 041
     Dates: start: 202204
  3. AVASTIN [Suspect]
     Active Substance: BEVACIZUMAB
     Indication: Hepatocellular carcinoma
     Dosage: UNK
     Route: 041
     Dates: start: 202103
  4. AVASTIN [Suspect]
     Active Substance: BEVACIZUMAB
     Dosage: UNK
     Route: 041
     Dates: start: 202204

REACTIONS (1)
  - Type 1 diabetes mellitus [Recovering/Resolving]

NARRATIVE: CASE EVENT DATE: 20210901
